FAERS Safety Report 4551977-5 (Version None)
Quarter: 2004Q4

REPORT INFORMATION
  Report Type: 
  Country: None (occurrence: None)
  Receive Date: 20041217
  Receipt Date: 20040813
  Transmission Date: 20050328
  Serious: No
  Sender: FDA-Public Use
  Company Number: 2004-BP-06895BP

PATIENT
  Age: 75 Year
  Sex: Female

DRUGS (9)
  1. SPIRIVA [Suspect]
     Indication: CHRONIC OBSTRUCTIVE AIRWAYS DISEASE
     Dosage: 18 MCG (18 MCG, 1 IN 1 D), IH
     Route: 055
     Dates: start: 20040101
  2. SPIRIVA [Suspect]
  3. VERAPAMIL [Concomitant]
  4. CLONOPIN (CLONAZEPAM) [Concomitant]
  5. KCL (POTASSIUM CHLORIDE) [Concomitant]
  6. DIOVAN [Concomitant]
  7. ARIMIDEX [Concomitant]
  8. LASIX (LASIX) [Concomitant]
  9. SEREVENT [Concomitant]

REACTIONS (4)
  - ASTHENIA [None]
  - DYSPNOEA [None]
  - FATIGUE [None]
  - PAIN IN EXTREMITY [None]
